FAERS Safety Report 16398791 (Version 1)
Quarter: 2019Q2

REPORT INFORMATION
  Report Type: Spontaneous
  Country: PL (occurrence: PL)
  Receive Date: 20190606
  Receipt Date: 20190606
  Transmission Date: 20190711
  Serious: Yes (Other)
  Sender: FDA-Public Use
  Company Number: PL-OTSUKA-2019_021885

PATIENT
  Sex: Female

DRUGS (1)
  1. ABILIFY [Suspect]
     Active Substance: ARIPIPRAZOLE
     Indication: SCHIZOPHRENIA
     Dosage: 1/4 OF A TABLET (15 MG) 2 TIMES A WEEK
     Route: 048

REACTIONS (3)
  - Inappropriate schedule of product administration [Unknown]
  - Pelvic pain [Recovering/Resolving]
  - Extrapyramidal disorder [Recovering/Resolving]
